FAERS Safety Report 4748524-1 (Version None)
Quarter: 2005Q3

REPORT INFORMATION
  Report Type: 
  Country: None (occurrence: None)
  Receive Date: 20050818
  Receipt Date: 20050808
  Transmission Date: 20060218
  Serious: Yes (Other)
  Sender: FDA-Public Use
  Company Number: 2005112334

PATIENT
  Age: 57 Year
  Sex: Female
  Weight: 52.6173 kg

DRUGS (1)
  1. CHILDREN'S PEDICARE COLD AND ALLERGY (PSEUDOEPHEDRINE, CHLORPHENIRAMIN [Suspect]
     Indication: NASOPHARYNGITIS
     Dosage: 1/2 TEASPOON ONCE, ORAL
     Route: 048
     Dates: start: 20050808, end: 20050808

REACTIONS (3)
  - HALLUCINATION [None]
  - LOSS OF CONSCIOUSNESS [None]
  - TREMOR [None]
